FAERS Safety Report 4897566-4 (Version None)
Quarter: 2006Q1

REPORT INFORMATION
  Report Type: 
  Country: None (occurrence: None)
  Receive Date: 20060130
  Receipt Date: 20060130
  Transmission Date: 20060701
  Serious: Yes (Hospitalization, Other)
  Sender: FDA-Public Use
  Company Number: None

PATIENT
  Age: 50 Year
  Sex: Female
  Weight: 59.8748 kg

DRUGS (4)
  1. OXYCONTIN [Suspect]
     Indication: PAIN
     Dosage: 40 MG 6X A DAY
     Dates: start: 20000401
  2. OXYCODONE-5 MG-MFR ETHEX [Suspect]
     Indication: PAIN
     Dosage: 5 MG BREAKTHRU PAIN 60/MONTH
     Dates: start: 19990901
  3. MORPHINE [Concomitant]
  4. DEMEROL [Concomitant]

REACTIONS (8)
  - ASTHENIA [None]
  - CHEST PAIN [None]
  - DRUG INTOLERANCE [None]
  - DRUG TOLERANCE DECREASED [None]
  - HEADACHE [None]
  - NERVOUS SYSTEM DISORDER [None]
  - OVERDOSE [None]
  - TOBACCO WITHDRAWAL SYMPTOMS [None]
